FAERS Safety Report 11054085 (Version 2)
Quarter: 2015Q4

REPORT INFORMATION
  Report Type: Report from Study
  Country: ID (occurrence: ID)
  Receive Date: 20150422
  Receipt Date: 20151217
  Transmission Date: 20160304
  Serious: Yes (Other)
  Sender: FDA-Public Use
  Company Number: ID-ROCHE-1465893

PATIENT
  Age: 72 Year
  Sex: Male

DRUGS (4)
  1. ERBITUX [Concomitant]
     Active Substance: CETUXIMAB
  2. AVASTIN [Suspect]
     Active Substance: BEVACIZUMAB
     Route: 065
     Dates: start: 201403, end: 20140721
  3. AVASTIN [Suspect]
     Active Substance: BEVACIZUMAB
     Route: 065
     Dates: start: 2013
  4. AVASTIN [Suspect]
     Active Substance: BEVACIZUMAB
     Indication: COLORECTAL CANCER METASTATIC
     Dosage: FOR 4 MONTHS, AFTER ONE YEAR THERAPY 10 TIMES
     Route: 065
     Dates: start: 2013

REACTIONS (5)
  - White blood cell count decreased [Unknown]
  - Disease progression [Unknown]
  - Platelet count decreased [Unknown]
  - Haemoglobin decreased [Unknown]
  - Drug ineffective [Unknown]
